FAERS Safety Report 14903699 (Version 1)
Quarter: 2018Q2

REPORT INFORMATION
  Report Type: Spontaneous
  Country: CN (occurrence: CN)
  Receive Date: 20180516
  Receipt Date: 20180516
  Transmission Date: 20180711
  Serious: Yes (Other)
  Sender: FDA-Public Use
  Company Number: CN-PFIZER INC-2018202565

PATIENT
  Age: 59 Year
  Sex: Male

DRUGS (3)
  1. CORDARONE [Suspect]
     Active Substance: AMIODARONE HYDROCHLORIDE
     Dosage: 1200 MG, DAILY
     Route: 042
     Dates: start: 20180316, end: 20180317
  2. CORDARONE [Suspect]
     Active Substance: AMIODARONE HYDROCHLORIDE
     Indication: PROPHYLAXIS
     Dosage: UNK
     Route: 048
  3. CORDARONE [Suspect]
     Active Substance: AMIODARONE HYDROCHLORIDE
     Indication: PROPHYLAXIS
     Dosage: 150 MG, DAILY
     Route: 041
     Dates: start: 20180316, end: 20180316

REACTIONS (1)
  - Phlebitis [Recovering/Resolving]

NARRATIVE: CASE EVENT DATE: 20180317
